FAERS Safety Report 13009719 (Version 1)
Quarter: 2016Q4

REPORT INFORMATION
  Report Type: Spontaneous
  Country: JP (occurrence: JP)
  Receive Date: 20161208
  Receipt Date: 20161208
  Transmission Date: 20170207
  Serious: Yes (Hospitalization)
  Sender: FDA-Public Use
  Company Number: JP-ASTELLAS-2015US015219

PATIENT
  Age: 53 Year
  Sex: Female

DRUGS (6)
  1. AVASTIN [Suspect]
     Active Substance: BEVACIZUMAB
     Indication: NON-SMALL CELL LUNG CANCER
     Route: 041
     Dates: start: 20141111, end: 20150427
  2. CALONAL [Concomitant]
     Active Substance: ACETAMINOPHEN
     Indication: PERIARTHRITIS
     Route: 048
     Dates: start: 20150302, end: 20150329
  3. TARCEVA [Suspect]
     Active Substance: ERLOTINIB HYDROCHLORIDE
     Indication: NON-SMALL CELL LUNG CANCER
     Route: 048
     Dates: start: 20141104, end: 20150427
  4. TARCEVA [Suspect]
     Active Substance: ERLOTINIB HYDROCHLORIDE
     Indication: LUNG ADENOCARCINOMA METASTATIC
     Route: 048
     Dates: start: 20150511
  5. TARCEVA [Suspect]
     Active Substance: ERLOTINIB HYDROCHLORIDE
     Indication: LUNG ADENOCARCINOMA
  6. CELECOX [Concomitant]
     Active Substance: CELECOXIB
     Indication: PERIARTHRITIS
     Route: 048
     Dates: start: 20150330, end: 20150426

REACTIONS (1)
  - Pneumatosis intestinalis [Unknown]

NARRATIVE: CASE EVENT DATE: 20150428
